FAERS Safety Report 14898827 (Version 1)
Quarter: 2018Q2

REPORT INFORMATION
  Report Type: Spontaneous
  Country: US (occurrence: US)
  Receive Date: 20180427
  Receipt Date: 20180427
  Transmission Date: 20180711
  Serious: No
  Sender: FDA-Public Use
  Company Number: None

PATIENT
  Age: 50 Year
  Sex: Male

DRUGS (1)
  1. KEYTRUDA [Suspect]
     Active Substance: PEMBROLIZUMAB
     Indication: COLON CANCER
     Dosage: 200 MG EVERY 3 WEEKS, INTRAVENOUS
     Route: 042
     Dates: start: 20180125

REACTIONS (3)
  - Weight decreased [None]
  - Nausea [None]
  - Cough [None]

NARRATIVE: CASE EVENT DATE: 20180401
